FAERS Safety Report 8684446 (Version 2)
Quarter: 2012Q4

REPORT INFORMATION
  Report Type: 
  Country: GB (occurrence: GB)
  Receive Date: 20120726
  Receipt Date: 20121025
  Transmission Date: 20130627
  Serious: Yes (Death, Hospitalization)
  Sender: FDA-Public Use
  Company Number: GB-ROCHE-1092784

PATIENT
  Age: 87 Year

DRUGS (5)
  1. LUCENTIS [Suspect]
     Indication: AGE-RELATED MACULAR DEGENERATION
     Route: 050
  2. PARACETAMOL [Concomitant]
     Route: 065
  3. SALBUTAMOL [Concomitant]
  4. HYPROMELLOSE EYE DROPS [Concomitant]
     Dosage: 0.3 percent
     Route: 065
  5. MACROGOL [Concomitant]

REACTIONS (7)
  - Pneumonia [Fatal]
  - Chronic obstructive pulmonary disease [Fatal]
  - Pulmonary tuberculosis [Fatal]
  - Cardiac failure congestive [Fatal]
  - Lower respiratory tract infection [Unknown]
  - Pollakiuria [Unknown]
  - Blood pressure abnormal [Unknown]
